FAERS Safety Report 7382555-0 (Version None)
Quarter: 2011Q1

REPORT INFORMATION
  Report Type: 
  Country: None (occurrence: None)
  Receive Date: 20110329
  Receipt Date: 20110324
  Transmission Date: 20110831
  Serious: Yes (Hospitalization)
  Sender: FDA-Public Use
  Company Number: JP-SANOFI-AVENTIS-2011SA005125

PATIENT
  Age: 94 Year
  Sex: Male
  Weight: 44.4 kg

DRUGS (9)
  1. ALDACTONE [Concomitant]
     Indication: CARDIAC FAILURE CONGESTIVE
     Route: 048
     Dates: start: 20101201, end: 20101210
  2. PLAVIX [Suspect]
     Indication: CAROTID ARTERY STENOSIS
     Route: 048
     Dates: start: 20101201, end: 20101210
  3. FUROSEMIDE [Concomitant]
     Indication: CARDIAC FAILURE CONGESTIVE
     Route: 048
     Dates: start: 20101201, end: 20101210
  4. IMIDAPRIL HYDROCHLORIDE [Concomitant]
     Indication: HYPERTENSION
     Route: 048
     Dates: start: 20101201, end: 20101210
  5. AMLODIPINE BESYLATE [Concomitant]
     Indication: HYPERTENSION
     Route: 048
     Dates: start: 20101201, end: 20101210
  6. PLAVIX [Suspect]
     Route: 048
     Dates: start: 20101201, end: 20101210
  7. PLAVIX [Suspect]
     Indication: CEREBRAL THROMBOSIS
     Route: 048
     Dates: start: 20101201, end: 20101210
  8. ALLOPURINOL [Concomitant]
     Indication: HYPERURICAEMIA
     Route: 048
     Dates: start: 20101201, end: 20101210
  9. MUCOSIL-10 [Concomitant]
     Indication: EMPHYSEMA
     Route: 048
     Dates: start: 20101201, end: 20101210

REACTIONS (4)
  - SINUS BRADYCARDIA [None]
  - HYPERKALAEMIA [None]
  - RENAL FAILURE [None]
  - HEPATIC FUNCTION ABNORMAL [None]
